FAERS Safety Report 8767272 (Version 6)
Quarter: 2014Q4

REPORT INFORMATION
  Report Type: Spontaneous
  Country: JP (occurrence: JP)
  Receive Date: 20120904
  Receipt Date: 20141112
  Transmission Date: 20150529
  Serious: Yes (Life-Threatening, Hospitalization, Other)
  Sender: FDA-Public Use
  Company Number: JP-GLAXOSMITHKLINE-B0826802A

PATIENT
  Age: 44 Year
  Sex: Female

DRUGS (2)
  1. LAMOTRIGINE. [Suspect]
     Active Substance: LAMOTRIGINE
     Indication: BIPOLAR II DISORDER
     Route: 048
     Dates: start: 201208, end: 201208
  2. SODIUM VALPROATE [Concomitant]
     Active Substance: VALPROATE SODIUM
     Indication: BIPOLAR II DISORDER
     Dosage: 1200 MG, TID

REACTIONS (15)
  - Platelet count decreased [Recovering/Resolving]
  - Infection [Unknown]
  - Oropharyngeal pain [Recovering/Resolving]
  - Rash [Recovering/Resolving]
  - Face oedema [Recovering/Resolving]
  - Hypocoagulable state [Recovering/Resolving]
  - White blood cell count decreased [Recovering/Resolving]
  - Obstructive airways disorder [Recovering/Resolving]
  - Disseminated intravascular coagulation [Recovering/Resolving]
  - Toxic epidermal necrolysis [Unknown]
  - Pyrexia [Recovering/Resolving]
  - Dyspnoea [Recovering/Resolving]
  - Stevens-Johnson syndrome [Recovering/Resolving]
  - Conjunctival hyperaemia [Recovering/Resolving]
  - Skin disorder [Recovering/Resolving]

NARRATIVE: CASE EVENT DATE: 20120827
